FAERS Safety Report 5714743-0 (Version None)
Quarter: 2008Q2

REPORT INFORMATION
  Report Type: 
  Country: None (occurrence: None)
  Receive Date: 20080423
  Receipt Date: 20060119
  Transmission Date: 20081010
  Serious: Yes (Death)
  Sender: FDA-Public Use
  Company Number: US-ROCHE-433194

PATIENT
  Age: 72 Year
  Sex: Male

DRUGS (2)
  1. CAPECITABINE [Suspect]
     Route: 065
     Dates: end: 20051125
  2. OXALIPLATIN [Suspect]
     Route: 065
     Dates: end: 20051115

REACTIONS (1)
  - DEATH [None]
